FAERS Safety Report 4577438-5 (Version None)
Quarter: 2005Q1

REPORT INFORMATION
  Report Type: 
  Country: None (occurrence: None)
  Receive Date: 20050208
  Receipt Date: 20041224
  Transmission Date: 20050727
  Serious: Yes (Hospitalization)
  Sender: FDA-Public Use
  Company Number: 2004-BP-01541NB

PATIENT
  Age: 70 Year
  Sex: Female

DRUGS (23)
  1. BI-SIFROL TABLETS (PRAMIPEXOLE DIHYDROCHLORIDE) (TA) (PRAMIPEXOLE) [Suspect]
     Indication: PARKINSON'S DISEASE
     Dosage: 1.5 MG (0.5 MG) PO
     Route: 048
     Dates: start: 20040205, end: 20040301
  2. VOLTAREN-XR [Suspect]
     Indication: SPINAL OSTEOARTHRITIS
     Dosage: 75 MG PO
     Route: 048
     Dates: start: 20030924, end: 20040301
  3. CEFZON (CEFDINIR) (KA) [Suspect]
     Indication: CONTUSION
     Dosage: 300 MG PO
     Route: 048
     Dates: start: 20040204, end: 20040301
  4. MUCOSTA (REBAMIPIDE) (TA) [Suspect]
     Indication: PROPHYLAXIS
     Dosage: 300 MG PO
     Route: 048
     Dates: start: 20040204, end: 20040301
  5. EC DOPARL (MADOPAR) (TA) [Concomitant]
     Indication: PARKINSON'S DISEASE
  6. FP (TA) [Concomitant]
     Indication: PARKINSON'S DISEASE
  7. DEPAS (ETIZOLAM) (TA) [Concomitant]
     Indication: AUTONOMIC NERVOUS SYSTEM IMBALANCE
  8. NAUZELIN (DOMPERIDONE) (TA) [Concomitant]
     Indication: NAUSEA
  9. ALFAROL (ALFACALCIDOL) (KA) [Concomitant]
     Indication: OSTEOPOROSIS
  10. ACINON (NIZATIDINE) (KA) [Concomitant]
     Indication: PROPHYLAXIS AGAINST GASTROINTESTINAL ULCER
  11. SENNOSIDE (TA) [Concomitant]
     Indication: DYSPEPSIA
  12. BIOFERMIN (BIOFERMIN) (PL) [Concomitant]
     Indication: DYSPEPSIA
  13. DIART (AZOSEMIDE) (TA) [Concomitant]
     Indication: OEDEMA
  14. MOHRUS TAPE (TTS) [Concomitant]
     Indication: SPINAL OSTEOARTHRITIS
  15. ADOFEED (FLURBIPROFEN) (TTS) [Concomitant]
     Indication: SPINAL OSTEOARTHRITIS
  16. ELCITONIN (ELCATONIN) (AMV) [Concomitant]
     Indication: OSTEOPOROSIS
  17. NEUROTROPIN (ORGAN LYSATE, STANDARDIZED) (TA) [Concomitant]
     Indication: OSTEOARTHRITIS
  18. GLAKAY (MENATETRENONE) (KA) [Concomitant]
     Indication: OSTEOPOROSIS
  19. ASPARA-CA (ASPARTATE CALCIUM) (TA) [Concomitant]
  20. GENTACIN (GENTAMICIN SULFATE) (CRO) [Concomitant]
     Indication: CONTUSION
  21. ISODINE (PROVIDONE-IODINE) [Concomitant]
     Indication: CONTUSION
  22. GLYCERIN (GLYCEROL) [Concomitant]
     Indication: DYSPEPSIA
  23. LECICARBON (LECICARBON) [Concomitant]
     Indication: DYSPEPSIA

REACTIONS (4)
  - CONSTIPATION [None]
  - DYSPEPSIA [None]
  - NEPHROTIC SYNDROME [None]
  - RENAL FAILURE ACUTE [None]
